FAERS Safety Report 15483901 (Version 1)
Quarter: 2018Q4

REPORT INFORMATION
  Report Type: Spontaneous
  Country: US (occurrence: US)
  Receive Date: 20181003
  Receipt Date: 20181003
  Transmission Date: 20190205
  Serious: Yes (Life-Threatening)
  Sender: FDA-Public Use
  Company Number: None

PATIENT
  Age: 82 Year
  Sex: Male
  Weight: 82.74 kg

DRUGS (1)
  1. INSULIN NPH/REGULAR 70/30 [Suspect]
     Active Substance: INSULIN NOS
     Indication: DIABETES MELLITUS
     Dates: start: 20091118

REACTIONS (2)
  - Blood glucose decreased [None]
  - Confusional state [None]

NARRATIVE: CASE EVENT DATE: 20180917
